FAERS Safety Report 5931881-8 (Version None)
Quarter: 2008Q4

REPORT INFORMATION
  Report Type: 
  Country: None (occurrence: None)
  Receive Date: 20081022
  Receipt Date: 20081008
  Transmission Date: 20090506
  Serious: Yes (Life-Threatening)
  Sender: FDA-Public Use
  Company Number: MPS1-1000119

PATIENT
  Age: 39 Year
  Sex: Female
  Weight: 39 kg

DRUGS (1)
  1. ALDURAZYME [Suspect]
     Indication: MUCOPOLYSACCHARIDOSIS I
     Dosage: INTRAVENOUS
     Route: 042
     Dates: start: 20031124, end: 20081008

REACTIONS (3)
  - ACUTE ABDOMEN [None]
  - CARDIAC FAILURE [None]
  - LYMPHADENECTOMY [None]
